FAERS Safety Report 6014815-X (Version None)
Quarter: 2008Q4

REPORT INFORMATION
  Report Type: 
  Country: None (occurrence: None)
  Receive Date: 20081219
  Receipt Date: 20081124
  Transmission Date: 20090506
  Serious: Yes (Other)
  Sender: FDA-Public Use
  Company Number: US-PFIZER INC-2008150217

PATIENT
  Age: 57 Year
  Sex: Female

DRUGS (2)
  1. DOFETILIDE [Suspect]
     Indication: ATRIAL FIBRILLATION
  2. DOFETILIDE [Suspect]
     Indication: ATRIAL FLUTTER

REACTIONS (2)
  - ACUTE CORONARY SYNDROME [None]
  - VENTRICULAR FIBRILLATION [None]
